FAERS Safety Report 13142390 (Version 1)
Quarter: 2017Q1

REPORT INFORMATION
  Report Type: Spontaneous
  Country: HR (occurrence: None)
  Receive Date: 20170123
  Receipt Date: 20170123
  Transmission Date: 20170428
  Serious: Yes (Hospitalization)
  Sender: FDA-Public Use
  Company Number: HR2017K0089SPO

PATIENT
  Sex: Female

DRUGS (1)
  1. ENAP (ENALAPRIL) TABLET [Suspect]
     Active Substance: ENALAPRIL
     Route: 048
     Dates: start: 20161009

REACTIONS (3)
  - Suicide attempt [None]
  - Cyanosis [None]
  - Intentional overdose [None]

NARRATIVE: CASE EVENT DATE: 20161009
